FAERS Safety Report 13648547 (Version 1)
Quarter: 2017Q2

REPORT INFORMATION
  Report Type: Spontaneous
  Country: FR (occurrence: FR)
  Receive Date: 20170613
  Receipt Date: 20170613
  Transmission Date: 20170830
  Serious: Yes (Other)
  Sender: FDA-Public Use
  Company Number: FR-BAYER-2017-110585

PATIENT
  Age: 26 Year
  Sex: Female

DRUGS (1)
  1. MIRENA [Suspect]
     Active Substance: LEVONORGESTREL
     Dosage: 20 MCG/24HR, CONT
     Route: 015
     Dates: start: 20120601, end: 20160101

REACTIONS (10)
  - Hypothyroidism [Unknown]
  - Pituitary tumour benign [Unknown]
  - Weight increased [Unknown]
  - Mood altered [Unknown]
  - Irritability [Unknown]
  - Hyperprolactinaemia [Unknown]
  - Hypertension [Unknown]
  - Dyspnoea [Unknown]
  - Insomnia [Unknown]
  - Libido decreased [Unknown]
